FAERS Safety Report 21357839 (Version 2)
Quarter: 2023Q1

REPORT INFORMATION
  Report Type: Other
  Country: PT (occurrence: PT)
  Receive Date: 20220921
  Receipt Date: 20230306
  Transmission Date: 20230418
  Serious: Yes (Other)
  Sender: FDA-Public Use
  Company Number: PT-CELLTRION INC.-2022PT015072

PATIENT

DRUGS (5)
  1. HERZUMA [Suspect]
     Active Substance: TRASTUZUMAB-PKRB
     Indication: Breast cancer
     Dosage: 600 MILLIGRAM, EVERY 1 CYCLE
     Route: 042
     Dates: start: 20220704
  2. DOCETAXEL [Concomitant]
     Active Substance: DOCETAXEL
     Route: 042
  3. PANTOPRAZOLE [Concomitant]
     Active Substance: PANTOPRAZOLE
     Dosage: 40 MILLIGRAM, EVERY 1 DAY
  4. CARBOPLATIN [Concomitant]
     Active Substance: CARBOPLATIN
     Route: 042
  5. DIAZEPAM [Concomitant]
     Active Substance: DIAZEPAM
     Dosage: 5 MILLIGRAM, QD
     Route: 048

REACTIONS (8)
  - Erythema [Recovered/Resolved]
  - Rash pruritic [Recovered/Resolved]
  - Myalgia [Recovered/Resolved]
  - Erythema [Recovered/Resolved]
  - Erythema [Recovered/Resolved]
  - Anaemia [Unknown]
  - Diarrhoea [Recovered/Resolved]
  - Off label use [Unknown]

NARRATIVE: CASE EVENT DATE: 20220701
